FAERS Safety Report 8137570-6 (Version None)
Quarter: 2012Q1

REPORT INFORMATION
  Report Type: 
  Country: None (occurrence: None)
  Receive Date: 20120215
  Receipt Date: 20120210
  Transmission Date: 20120608
  Serious: No
  Sender: FDA-Public Use
  Company Number: US-PFIZER INC-2012017858

PATIENT

DRUGS (1)
  1. VIAGRA [Suspect]
     Dosage: 50 MG, TAKE ONE TAB BY MOUTH EVERY 24 HOURS AS NEEDED , 45 MINS BEFORE SEXUAL ACTIVITY
     Route: 048

REACTIONS (1)
  - DRUG INEFFECTIVE [None]
